FAERS Safety Report 4415215-6 (Version None)
Quarter: 2004Q3

REPORT INFORMATION
  Report Type: 
  Country: None (occurrence: None)
  Receive Date: 20040729
  Receipt Date: 20040722
  Transmission Date: 20050211
  Serious: Yes (Life-Threatening, Hospitalization)
  Sender: FDA-Public Use
  Company Number: 2004225007DE

PATIENT
  Age: 64 Year
  Sex: Female
  Weight: 66.7 kg

DRUGS (3)
  1. FARMORUBICIN        (EPIRUBICIN  HYDROCHLORIDE) [Suspect]
     Indication: BREAST CANCER FEMALE
     Dosage: 105.6 MG, CYCLIC, IV
     Route: 042
     Dates: start: 20040702, end: 20040702
  2. FLUOROURACIL [Suspect]
     Indication: BREAST CANCER FEMALE
     Dosage: 880 MG, CYCLIC, IV
     Route: 042
     Dates: start: 20040702, end: 20040702
  3. CYCLOPHOSPHAMIDE [Suspect]
     Indication: BREAST CANCER FEMALE
     Dosage: 132 MG, CYCLIC, ORAL
     Route: 048

REACTIONS (2)
  - ELECTROLYTE IMBALANCE [None]
  - SEPSIS [None]
